FAERS Safety Report 23232529 (Version 3)
Quarter: 2023Q4

REPORT INFORMATION
  Report Type: Spontaneous
  Country: FI (occurrence: FI)
  Receive Date: 20231128
  Receipt Date: 20231214
  Transmission Date: 20240109
  Serious: Yes (Life-Threatening, Other)
  Sender: FDA-Public Use
  Company Number: None

PATIENT
  Age: 44 Year
  Sex: Female

DRUGS (6)
  1. PALIPERIDONE PALMITATE [Suspect]
     Active Substance: PALIPERIDONE PALMITATE
     Indication: Psychotic disorder
     Dosage: 75 - 100,MG,MONTHLY
     Route: 030
     Dates: start: 20230912, end: 20231030
  2. PALIPERIDONE PALMITATE [Suspect]
     Active Substance: PALIPERIDONE PALMITATE
  3. PALIPERIDONE PALMITATE [Suspect]
     Active Substance: PALIPERIDONE PALMITATE
  4. BISOPROLOL [Concomitant]
     Active Substance: BISOPROLOL\BISOPROLOL FUMARATE
     Indication: Hypertension
     Dosage: 5,MG,DAILY
     Route: 048
  5. AMLODIPINE [Concomitant]
     Active Substance: AMLODIPINE BESYLATE
     Indication: Hypertension
     Dosage: 5 MG, QD (5,MG,DAILY)
     Route: 048
  6. ATORVASTATIN [Concomitant]
     Active Substance: ATORVASTATIN
     Indication: Hypercholesterolaemia
     Dosage: 10,MG,DAILY
     Route: 048

REACTIONS (17)
  - Oxygen saturation decreased [Recovering/Resolving]
  - Upper respiratory tract infection [Recovering/Resolving]
  - Palpitations [Recovering/Resolving]
  - Salivary hypersecretion [Recovering/Resolving]
  - Neuroleptic malignant syndrome [Recovering/Resolving]
  - Malaise [Recovering/Resolving]
  - XIIth nerve injury [Recovering/Resolving]
  - Akathisia [Recovering/Resolving]
  - Enterobacter test positive [Recovering/Resolving]
  - Dyspnoea [Recovering/Resolving]
  - Vomiting [Recovering/Resolving]
  - Rhonchi [Recovering/Resolving]
  - Aspiration [Recovering/Resolving]
  - Tremor [Recovering/Resolving]
  - Muscular weakness [Recovering/Resolving]
  - Klebsiella test positive [Recovering/Resolving]
  - Pneumonia aspiration [Recovering/Resolving]

NARRATIVE: CASE EVENT DATE: 20230927
